FAERS Safety Report 5856645-5 (Version None)
Quarter: 2008Q3

REPORT INFORMATION
  Report Type: 
  Country: None (occurrence: None)
  Receive Date: 20080825
  Receipt Date: 20080815
  Transmission Date: 20090109
  Serious: Yes (Death, Hospitalization)
  Sender: FDA-Public Use
  Company Number: SE-AVENTIS-200814879GDDC

PATIENT
  Age: 56 Year
  Sex: Female

DRUGS (10)
  1. TAXOTERE [Suspect]
     Indication: BREAST CANCER
     Dates: start: 20071201, end: 20080301
  2. TAXOTERE [Suspect]
     Dates: start: 20071201, end: 20080301
  3. XELODA [Suspect]
     Indication: BREAST CANCER
     Route: 048
     Dates: start: 20080225, end: 20080306
  4. XELODA [Suspect]
     Route: 048
     Dates: start: 20080225, end: 20080306
  5. FLUCONAZOLE [Suspect]
     Route: 048
     Dates: start: 20080306
  6. CIPROFLOXACIN [Concomitant]
  7. OMEPRAZOLE [Concomitant]
  8. BETAPRED [Concomitant]
  9. HYDROCORTISONE-NEOMYCIN [Concomitant]
  10. NOLVADEX [Concomitant]

REACTIONS (3)
  - HEPATIC CIRRHOSIS [None]
  - ORAL FUNGAL INFECTION [None]
  - STOMATITIS [None]
